FAERS Safety Report 10665417 (Version 3)
Quarter: 2016Q4

REPORT INFORMATION
  Report Type: Report from Study
  Country: JP (occurrence: JP)
  Receive Date: 20141219
  Receipt Date: 20161024
  Transmission Date: 20170206
  Serious: Yes (Other)
  Sender: FDA-Public Use
  Company Number: JP-PFIZER INC-2014342306

PATIENT
  Age: 45 Year
  Sex: Male
  Weight: 76.1 kg

DRUGS (3)
  1. MAGMITT [Concomitant]
     Active Substance: MAGNESIUM OXIDE
     Indication: CONSTIPATION
     Dosage: 330 MG, AS NEEDED
     Route: 048
     Dates: start: 20140219, end: 20160406
  2. BIOFERMIN [Concomitant]
     Active Substance: BACILLUS SUBTILIS\LACTOBACILLUS ACIDOPHILUS\STREPTOCOCCUS FAECAIS
     Indication: DIARRHOEA
     Dosage: 1 G, AS NEEDED
     Route: 048
     Dates: start: 20140306, end: 20160406
  3. XALKORI [Suspect]
     Active Substance: CRIZOTINIB
     Indication: NON-SMALL CELL LUNG CANCER
     Dosage: 250 MG, 2X/DAY
     Route: 048
     Dates: start: 20140123, end: 20160405

REACTIONS (1)
  - Renal mass [Recovering/Resolving]

NARRATIVE: CASE EVENT DATE: 20141001
